FAERS Safety Report 16792321 (Version 1)
Quarter: 2019Q3

REPORT INFORMATION
  Report Type: Spontaneous
  Country: FR (occurrence: FR)
  Receive Date: 20190910
  Receipt Date: 20190910
  Transmission Date: 20191005
  Serious: Yes (Hospitalization)
  Sender: FDA-Public Use
  Company Number: FR-ELI_LILLY_AND_COMPANY-FR201909001208

PATIENT
  Age: 18 Year
  Sex: Male
  Weight: 65 kg

DRUGS (2)
  1. ANDROTARDYL [Suspect]
     Active Substance: TESTOSTERONE
     Indication: GROWTH RETARDATION
     Route: 030
     Dates: start: 20170908, end: 20180201
  2. UMATROPE [Suspect]
     Active Substance: SOMATROPIN
     Indication: GROWTH RETARDATION
     Route: 058
     Dates: start: 20170210, end: 20180201

REACTIONS (1)
  - Epiphysiolysis [Recovered/Resolved with Sequelae]

NARRATIVE: CASE EVENT DATE: 20190807
